FAERS Safety Report 25988853 (Version 1)
Quarter: 2025Q4

REPORT INFORMATION
  Report Type: Spontaneous
  Country: US (occurrence: US)
  Receive Date: 20251103
  Receipt Date: 20251103
  Transmission Date: 20260118
  Serious: No
  Sender: RIGEL PHARMACEUTICALS
  Company Number: US-RIGEL Pharmaceuticals-20250400063

PATIENT
  Sex: Male

DRUGS (1)
  1. GAVRETO [Suspect]
     Active Substance: PRALSETINIB
     Indication: Lung neoplasm malignant
     Dosage: 200 MILLIGRAM, QD
     Route: 048
     Dates: start: 20250224

REACTIONS (4)
  - Product prescribing issue [Unknown]
  - Troponin increased [Unknown]
  - Pleural effusion [Unknown]
  - Cough [Unknown]
